FAERS Safety Report 7327654-4 (Version None)
Quarter: 2011Q1

REPORT INFORMATION
  Report Type: 
  Country: None (occurrence: None)
  Receive Date: 20110303
  Receipt Date: 20100817
  Transmission Date: 20110831
  Serious: Yes (Life-Threatening, Other)
  Sender: FDA-Public Use
  Company Number: US-BAYER-201013650NA

PATIENT
  Sex: Female
  Weight: 42.63 kg

DRUGS (9)
  1. DIFLUCAN [Concomitant]
  2. REGLAN [Concomitant]
  3. TINDAMAX [Concomitant]
     Dosage: 500 MG, UNK
  4. YASMIN [Suspect]
     Indication: ORAL CONTRACEPTION
     Dosage: 1 DF, QD
     Route: 048
     Dates: start: 20070801, end: 20071201
  5. YAZ [Suspect]
     Dosage: 1 DF, QD
     Route: 048
     Dates: start: 20071201, end: 20090201
  6. BACTRIM DS [Concomitant]
  7. METRONIDAZOLE [Concomitant]
     Dosage: 500 MG, UNK
  8. YAZ [Suspect]
     Indication: ORAL CONTRACEPTION
     Dosage: 1 DF, QD
     Route: 048
     Dates: start: 20060101, end: 20070801
  9. FLAGYL [Concomitant]

REACTIONS (6)
  - ABDOMINAL PAIN [None]
  - BILIARY DYSKINESIA [None]
  - CONSTIPATION [None]
  - NAUSEA [None]
  - GALLBLADDER NON-FUNCTIONING [None]
  - CHOLECYSTITIS CHRONIC [None]
